FAERS Safety Report 10733319 (Version 2)
Quarter: 2015Q3

REPORT INFORMATION
  Report Type: Spontaneous
  Country: US (occurrence: US)
  Receive Date: 20150123
  Receipt Date: 20150930
  Transmission Date: 20151125
  Serious: Yes (Hospitalization)
  Sender: FDA-Public Use
  Company Number: US-BAYER-2015-009130

PATIENT
  Age: 20 Year
  Sex: Female
  Weight: 102.49 kg

DRUGS (1)
  1. MIRENA [Suspect]
     Active Substance: LEVONORGESTREL
     Indication: CONTRACEPTION
     Dosage: 20 MCG/24HR, CONT
     Route: 015
     Dates: start: 20110331, end: 20110928

REACTIONS (7)
  - Activities of daily living impaired [None]
  - Injury [None]
  - Device issue [None]
  - Embedded device [None]
  - Pain [None]
  - Emotional distress [None]
  - Abdominal pain lower [None]

NARRATIVE: CASE EVENT DATE: 201104
